FAERS Safety Report 5151797-7 (Version None)
Quarter: 2006Q4

REPORT INFORMATION
  Report Type: 
  Country: None (occurrence: None)
  Receive Date: 20061115
  Receipt Date: 20061106
  Transmission Date: 20070319
  Serious: Yes (Other)
  Sender: FDA-Public Use
  Company Number: CA-BOEHRINGER INGELHEIM PHARMACEUTICALS, INC.-2006-CN-00619CN

PATIENT
  Sex: Female

DRUGS (1)
  1. SPIRIVA [Suspect]
     Indication: EMPHYSEMA
     Route: 055
     Dates: start: 20061101, end: 20061103

REACTIONS (4)
  - BRONCHIAL DISORDER [None]
  - BURNING SENSATION [None]
  - TONGUE DISORDER [None]
  - TRACHEAL DISORDER [None]
